FAERS Safety Report 22659305 (Version 1)
Quarter: 2023Q2

REPORT INFORMATION
  Report Type: Spontaneous
  Country: ES (occurrence: ES)
  Receive Date: 20230630
  Receipt Date: 20230630
  Transmission Date: 20230721
  Serious: Yes (Other)
  Sender: FDA-Public Use
  Company Number: ES-PFIZER INC-202300217932

PATIENT
  Age: 74 Year
  Sex: Male

DRUGS (3)
  1. TOBRAMYCIN [Suspect]
     Active Substance: TOBRAMYCIN
     Indication: Peritonitis
     Dosage: 50 MILLIGRAM
     Route: 033
  2. DAPTOMYCIN [Suspect]
     Active Substance: DAPTOMYCIN
     Indication: Peritonitis
     Dosage: 300 MILLIGRAM
     Route: 033
  3. RIFAMPIN [Suspect]
     Active Substance: RIFAMPIN
     Indication: Peritonitis
     Dosage: 600 MILLIGRAM, QD
     Route: 048

REACTIONS (2)
  - Treatment failure [Unknown]
  - Off label use [Unknown]
